FAERS Safety Report 9861107 (Version 1)
Quarter: 2014Q1

REPORT INFORMATION
  Report Type: Spontaneous
  Country: TR (occurrence: TR)
  Receive Date: 20140202
  Receipt Date: 20140202
  Transmission Date: 20141002
  Serious: Yes (Hospitalization)
  Sender: FDA-Public Use
  Company Number: TR-ALLERGAN-1303592US

PATIENT
  Age: 80 Year
  Sex: Female

DRUGS (1)
  1. BOTOX LIYOFILIZE TOZ ICEREN FLAKON [Suspect]
     Indication: HYPOGLOSSAL NERVE DISORDER
     Dosage: 20 UNITS, SINGLE
     Route: 030
     Dates: start: 20130201, end: 20130201

REACTIONS (4)
  - Dysphagia [Recovering/Resolving]
  - Eyelid ptosis [Recovering/Resolving]
  - Muscular weakness [Recovering/Resolving]
  - Off label use [Unknown]
